FAERS Safety Report 5269882-8 (Version None)
Quarter: 2007Q1

REPORT INFORMATION
  Report Type: 
  Country: None (occurrence: None)
  Receive Date: 20061214
  Receipt Date: 20060623
  Transmission Date: 20070707
  Serious: Yes (Hospitalization, Other)
  Sender: FDA-Public Use
  Company Number: 2006054557

PATIENT
  Age: 65 Year
  Sex: Female

DRUGS (1)
  1. BEXTRA [Suspect]
     Indication: ARTHRALGIA
     Dosage: 20 MG (20 MG, 1 IN 1 D);
     Dates: start: 20020405, end: 20050330

REACTIONS (4)
  - ANXIETY [None]
  - DECREASED ACTIVITY [None]
  - MYOCARDIAL INFARCTION [None]
  - TREMOR [None]
